FAERS Safety Report 16475663 (Version 1)
Quarter: 2019Q2

REPORT INFORMATION
  Report Type: Spontaneous
  Country: SE (occurrence: SE)
  Receive Date: 20190625
  Receipt Date: 20190625
  Transmission Date: 20190711
  Serious: Yes (Other)
  Sender: FDA-Public Use
  Company Number: SE-TEVA-2019-SE-1067459

PATIENT
  Age: 74 Year
  Sex: Male

DRUGS (6)
  1. OMEPRAZOLE. [Suspect]
     Active Substance: OMEPRAZOLE
     Indication: OESOPHAGEAL ULCER
     Dosage: 40 MG 1X1
     Route: 048
     Dates: start: 20190423, end: 20190423
  2. SIMVASTATIN 20 MG, 1X1 [Concomitant]
     Route: 065
  3. AMLODIPIN 5 MG, 2X1 [Concomitant]
     Route: 065
  4. BEHEPAN 1 MG, 1X2 [Concomitant]
     Route: 065
  5. SALURES 5 MG, 1X2 [Concomitant]
     Route: 065
  6. KAJOS 33 MG/ML, 15 ML X2 [Concomitant]
     Route: 065

REACTIONS (7)
  - Pruritus [Recovered/Resolved]
  - Cough [Recovered/Resolved]
  - Urticaria [Recovered/Resolved]
  - Throat irritation [Recovered/Resolved]
  - Sneezing [Recovered/Resolved]
  - Anaphylactic reaction [Recovered/Resolved]
  - Dizziness [Recovered/Resolved]

NARRATIVE: CASE EVENT DATE: 20190423
